FAERS Safety Report 6636827-5 (Version None)
Quarter: 2010Q1

REPORT INFORMATION
  Report Type: 
  Country: None (occurrence: None)
  Receive Date: 20100311
  Receipt Date: 20100301
  Transmission Date: 20100710
  Serious: Yes (Other)
  Sender: FDA-Public Use
  Company Number: 524909

PATIENT
  Age: 3 Year
  Sex: Female

DRUGS (4)
  1. METHOTREXATE [Suspect]
     Indication: MEDULLOBLASTOMA
  2. VINCRISTINE SULFATE [Suspect]
     Indication: MEDULLOBLASTOMA
  3. (NITROGEN MUSTARD) [Suspect]
     Indication: MEDULLOBLASTOMA
  4. PROCARBAZINE HYDROCHLORIDE [Suspect]
     Indication: MEDULLOBLASTOMA

REACTIONS (1)
  - MYELOID LEUKAEMIA [None]
